FAERS Safety Report 4535883-8 (Version None)
Quarter: 2004Q4

REPORT INFORMATION
  Report Type: 
  Country: None (occurrence: None)
  Receive Date: 20041222
  Receipt Date: 20041222
  Transmission Date: 20050328
  Serious: Yes (Other)
  Sender: FDA-Public Use
  Company Number: None

PATIENT
  Sex: Female

DRUGS (1)
  1. DEPAKOTE ER [Suspect]
     Indication: MANIA
     Dosage: 500 MG PO BID
     Route: 048
     Dates: start: 20041204, end: 20041207

REACTIONS (7)
  - DISTURBANCE IN ATTENTION [None]
  - DYSARTHRIA [None]
  - EYELID DISORDER [None]
  - GAIT DISTURBANCE [None]
  - MENTAL STATUS CHANGES [None]
  - PSYCHOMOTOR RETARDATION [None]
  - SEDATION [None]
